FAERS Safety Report 4515251-5 (Version None)
Quarter: 2004Q4

REPORT INFORMATION
  Report Type: 
  Country: None (occurrence: None)
  Receive Date: 20041130
  Receipt Date: 20041130
  Transmission Date: 20050328
  Serious: Yes (Hospitalization)
  Sender: FDA-Public Use
  Company Number: None

PATIENT
  Sex: Male
  Weight: 77.1115 kg

DRUGS (17)
  1. VIOXX [Suspect]
     Indication: PAIN
     Dosage: DAILY TO BID
     Dates: start: 20040322, end: 20040916
  2. CELEBREX [Suspect]
     Dosage: BID
     Dates: start: 20040615, end: 20040820
  3. NORCO [Concomitant]
  4. VICODIN [Concomitant]
  5. MORPHINE [Concomitant]
  6. ATVAN [Concomitant]
  7. DEXAMETHASONE [Concomitant]
  8. COMPAZINE [Concomitant]
  9. ZOFRAN [Concomitant]
  10. ANZEMET [Concomitant]
  11. ALOXI [Concomitant]
  12. GEMZAR [Concomitant]
  13. CARBOPLATIN [Concomitant]
  14. VELCODE [Concomitant]
  15. TAXOL [Concomitant]
  16. TAXOTERE [Concomitant]
  17. IRESSA [Concomitant]

REACTIONS (1)
  - MYOCARDIAL INFARCTION [None]
